FAERS Safety Report 13262674 (Version 6)
Quarter: 2018Q4

REPORT INFORMATION
  Report Type: Report from Study
  Country: JP (occurrence: JP)
  Receive Date: 20170223
  Receipt Date: 20181219
  Transmission Date: 20190204
  Serious: Yes (Hospitalization)
  Sender: FDA-Public Use
  Company Number: JP-ACTELION-A-CH2017-149924

PATIENT
  Age: 48 Year
  Sex: Female

DRUGS (32)
  1. PREDNISOLON [Suspect]
     Active Substance: PREDNISOLONE
     Indication: SYSTEMIC LUPUS ERYTHEMATOSUS
     Dosage: 4 MG, QD
     Route: 048
     Dates: start: 20170310, end: 20170330
  2. PREDONINE [Suspect]
     Active Substance: PREDNISOLONE
     Dosage: 30 MG, QD
     Route: 048
     Dates: start: 20161211, end: 20161224
  3. CELLCEPT [Suspect]
     Active Substance: MYCOPHENOLATE MOFETIL\MYCOPHENOLATE MOFETIL HYDROCHLORIDE
     Indication: SYSTEMIC LUPUS ERYTHEMATOSUS
     Dosage: UNK
     Route: 065
     Dates: start: 20170309, end: 20170622
  4. ANPLAG [Concomitant]
     Active Substance: SARPOGRELATE
  5. TRACLEER [Suspect]
     Active Substance: BOSENTAN
     Indication: SCLERODERMA ASSOCIATED DIGITAL ULCER
     Dosage: 62.5 MG, OD
     Route: 048
     Dates: start: 20161020, end: 20161104
  6. PREDNISOLON [Suspect]
     Active Substance: PREDNISOLONE
     Dosage: 2 MG, QD
     Route: 048
     Dates: start: 20170331, end: 20170511
  7. PREDONINE [Suspect]
     Active Substance: PREDNISOLONE
     Dosage: 25 MG, QD
     Route: 048
     Dates: start: 20161225, end: 20170107
  8. TAKECAB [Concomitant]
     Active Substance: VONOPRAZAN FUMURATE
  9. GEBEN [Concomitant]
     Active Substance: SILVER SULFADIAZINE
  10. BONALON [Concomitant]
     Active Substance: ALENDRONATE SODIUM
  11. GASMOTIN [Concomitant]
     Active Substance: MOSAPRIDE CITRATE
  12. PROCYLIN [Concomitant]
     Active Substance: BERAPROST SODIUM
     Dosage: UNK
     Dates: start: 20161218
  13. TRACLEER [Suspect]
     Active Substance: BOSENTAN
     Dosage: 62.5 MG, OD
     Route: 048
     Dates: start: 20160825, end: 20160915
  14. FERROMIA [Concomitant]
     Active Substance: SODIUM FERROUS CITRATE
  15. TRACLEER [Suspect]
     Active Substance: BOSENTAN
     Dosage: 62.5 MG, OD
     Route: 048
     Dates: start: 20161118
  16. PREDNISOLON [Suspect]
     Active Substance: PREDNISOLONE
     Dosage: 4 MG, QD
     Route: 048
     Dates: start: 20170804, end: 20180515
  17. PREDONINE [Suspect]
     Active Substance: PREDNISOLONE
     Dosage: 35 MG, QD
     Route: 048
     Dates: start: 20161112, end: 20161210
  18. PREDONINE [Suspect]
     Active Substance: PREDNISOLONE
     Dosage: 5 MG, QD
     Route: 048
     Dates: start: 20170804, end: 20180815
  19. FUROSEMIDE. [Suspect]
     Active Substance: FUROSEMIDE
     Indication: PRODUCT USED FOR UNKNOWN INDICATION
     Dosage: UNK
     Route: 042
     Dates: end: 20161121
  20. BIO-THREE [Concomitant]
     Active Substance: HERBALS
  21. CEFAZOLIN [Concomitant]
     Active Substance: CEFAZOLIN
  22. DIART [Concomitant]
     Active Substance: AZOSEMIDE
  23. PREDONINE [Suspect]
     Active Substance: PREDNISOLONE
     Dosage: 10 MG, QD
     Route: 048
     Dates: start: 20170310, end: 20170803
  24. KLARICID [Concomitant]
     Active Substance: CLARITHROMYCIN
  25. IMURAN [Suspect]
     Active Substance: AZATHIOPRINE
     Indication: SYSTEMIC LUPUS ERYTHEMATOSUS
     Dosage: UNK
     Route: 065
     Dates: start: 20170119, end: 20170223
  26. BAKTAR [Concomitant]
     Active Substance: SULFAMETHOXAZOLE\TRIMETHOPRIM
  27. SPIRONOLACTON [Suspect]
     Active Substance: SPIRONOLACTONE
     Indication: PRODUCT USED FOR UNKNOWN INDICATION
     Dosage: 50 MG, QD
     Route: 048
  28. PREDONINE [Suspect]
     Active Substance: PREDNISOLONE
     Indication: SYSTEMIC LUPUS ERYTHEMATOSUS
     Dosage: 10 MG, QD
     Route: 048
     Dates: start: 20161019, end: 20161109
  29. PREDONINE [Suspect]
     Active Substance: PREDNISOLONE
     Dosage: 20 MG, QD
     Route: 048
     Dates: start: 20170108, end: 20170223
  30. PREDONINE [Suspect]
     Active Substance: PREDNISOLONE
     Dosage: 15 MG, QD
     Route: 048
     Dates: start: 20170224, end: 20170309
  31. PALUX [Concomitant]
     Active Substance: ALPROSTADIL
     Dosage: UNK
     Dates: start: 20170330
  32. HIRUDOID [Concomitant]
     Active Substance: GLYCOSAMINOGLYCANS

REACTIONS (34)
  - Infection [Recovering/Resolving]
  - Malaise [Recovering/Resolving]
  - Nasopharyngitis [Recovered/Resolved]
  - Systemic lupus erythematosus [Recovered/Resolved]
  - Pleurisy [Recovering/Resolving]
  - Cardiomegaly [Recovered/Resolved with Sequelae]
  - Dyspnoea exertional [Recovered/Resolved]
  - Cough [Recovered/Resolved with Sequelae]
  - Respiratory disorder [Recovered/Resolved with Sequelae]
  - Oedema peripheral [Recovering/Resolving]
  - Pyrexia [Recovering/Resolving]
  - Arrhythmia supraventricular [Recovered/Resolved]
  - Supraventricular tachycardia [Recovered/Resolved]
  - Condition aggravated [Recovering/Resolving]
  - Oral candidiasis [Recovered/Resolved]
  - Cellulitis [Recovered/Resolved]
  - Cardiac failure congestive [Recovered/Resolved with Sequelae]
  - Pulmonary oedema [Recovering/Resolving]
  - Hepatic function abnormal [Recovered/Resolved]
  - Joint contracture [Recovering/Resolving]
  - Dehydration [Recovered/Resolved]
  - Nausea [Recovered/Resolved]
  - Pleural effusion [Recovered/Resolved with Sequelae]
  - Skin ulcer [Recovering/Resolving]
  - Hypokalaemia [Recovered/Resolved]
  - Renal impairment [Recovering/Resolving]
  - Decubitus ulcer [Recovering/Resolving]
  - Oesophageal candidiasis [Recovered/Resolved]
  - Erythema [Recovered/Resolved]
  - Pulmonary hypertension [Recovered/Resolved]
  - Diarrhoea [Recovered/Resolved]
  - Anaemia [Recovering/Resolving]
  - Neoplasm skin [Recovered/Resolved]
  - Tenderness [Recovered/Resolved]

NARRATIVE: CASE EVENT DATE: 20160912
